FAERS Safety Report 8961951 (Version 1)
Quarter: 2012Q4

REPORT INFORMATION
  Report Type: 
  Country: GB (occurrence: GB)
  Receive Date: 20121212
  Receipt Date: 20121212
  Transmission Date: 20130627
  Serious: Yes (Other)
  Sender: FDA-Public Use
  Company Number: PHHY2012GB113967

PATIENT
  Age: 77 Year
  Sex: Male
  Weight: 73.29 kg

DRUGS (6)
  1. SIMVASTATIN [Suspect]
     Route: 048
     Dates: start: 20120821
  2. ADIZEM [Interacting]
     Dates: start: 20120821
  3. ASPIRIN [Concomitant]
     Indication: PROPHYLAXIS
     Dates: start: 20120821
  4. LISINOPRIL [Concomitant]
     Dates: start: 20120821, end: 20121016
  5. FERROUS SULPHATE [Concomitant]
     Dates: start: 20121023
  6. ATORVASTATIN [Concomitant]
     Indication: PROPHYLAXIS
     Dates: start: 20121127

REACTIONS (1)
  - Drug interaction [Recovered/Resolved]
